FAERS Safety Report 23855978 (Version 1)
Quarter: 2024Q2

REPORT INFORMATION
  Report Type: Spontaneous
  Country: US (occurrence: None)
  Receive Date: 20240515
  Receipt Date: 20240515
  Transmission Date: 20240717
  Serious: Yes (Hospitalization)
  Sender: FDA-Public Use
  Company Number: 2024A110787

PATIENT
  Sex: Male

DRUGS (1)
  1. BREZTRI [Suspect]
     Active Substance: BUDESONIDE\FORMOTEROL\GLYCOPYRROLATE
     Dosage: UNKNOWN UNKNOWN
     Route: 055

REACTIONS (11)
  - Pneumonia [Unknown]
  - Dyspnoea [Unknown]
  - Ocular hyperaemia [Unknown]
  - Gait inability [Unknown]
  - Dysstasia [Unknown]
  - Feeding disorder [Unknown]
  - Insomnia [Unknown]
  - Chronic obstructive pulmonary disease [Unknown]
  - Blood glucose increased [Unknown]
  - Feeling abnormal [Unknown]
  - Lacrimation increased [Unknown]
